FAERS Safety Report 18187247 (Version 1)
Quarter: 2020Q3

REPORT INFORMATION
  Report Type: Spontaneous
  Country: US (occurrence: US)
  Receive Date: 20200824
  Receipt Date: 20200824
  Transmission Date: 20201103
  Serious: Yes (Death)
  Sender: FDA-Public Use
  Company Number: None

PATIENT
  Age: 80 Year
  Sex: Female
  Weight: 80.3 kg

DRUGS (13)
  1. DEXAMETHASONE 20 MG IV DAILY [Concomitant]
     Dates: start: 20200816, end: 20200820
  2. GUAIFENESIN 600 MG ER BID [Concomitant]
     Dates: start: 20200814, end: 20200820
  3. MORPHINE 2 MG IV X1 [Concomitant]
     Dates: start: 20200820
  4. MOMENTASONE ? FORMOTEROL 2 PUFFS BID [Concomitant]
     Dates: start: 20200819, end: 20200820
  5. NIFEDIPINE 50 MG ER PO DAILY [Concomitant]
     Dates: start: 20200811, end: 20200820
  6. MORPHINE 1 MG IV Q3H PRN [Concomitant]
     Dates: start: 20200817, end: 20200820
  7. ENOXAPARIN 80 MG IV BID [Concomitant]
     Dates: start: 20200819, end: 20200820
  8. ALBUTEROL 2 PUFFS Q4H PRN [Concomitant]
     Dates: start: 20200817, end: 20200820
  9. LORAZEPAM 1 MG IV Q1H PRN [Concomitant]
     Dates: start: 20200820, end: 20200820
  10. IPRATROPIUM HFA INHALER 2 PUFFS BID [Concomitant]
     Dates: start: 20200817, end: 20200820
  11. LORAZEPAM 2 MG IV ONCE [Concomitant]
     Dates: start: 20200820
  12. REMDESIVIR. [Suspect]
     Active Substance: REMDESIVIR
     Indication: COVID-19
     Dates: start: 20200804, end: 20200813
  13. HYDROMORPHONE PCA [Concomitant]
     Active Substance: HYDROMORPHONE
     Dates: start: 20200820

REACTIONS (2)
  - Pulmonary embolism [None]
  - Pneumonia bacterial [None]

NARRATIVE: CASE EVENT DATE: 20200820
